FAERS Safety Report 6196412-9 (Version None)
Quarter: 2009Q2

REPORT INFORMATION
  Report Type: 
  Country: None (occurrence: None)
  Receive Date: 20090518
  Receipt Date: 20090518
  Transmission Date: 20091009
  Serious: Yes (Other)
  Sender: FDA-Public Use
  Company Number: None

PATIENT
  Age: 58 Year
  Sex: Male
  Weight: 81.6475 kg

DRUGS (4)
  1. CARBAMAZEPINE [Suspect]
     Indication: BACK PAIN
     Dosage: 1 TABLET PER DAY INCREASE 3X PER DAY PO
     Route: 048
     Dates: start: 20090503, end: 20090508
  2. IBUPROFEN [Suspect]
     Indication: BACK PAIN
     Dosage: 1 TABLET 3X PER DAY PO
     Route: 048
     Dates: start: 20090503, end: 20090508
  3. CARABAMAZEPINE [Concomitant]
  4. IBUPROFEN [Concomitant]

REACTIONS (8)
  - DISORIENTATION [None]
  - DIZZINESS [None]
  - DRUG INEFFECTIVE [None]
  - FEELING ABNORMAL [None]
  - IMPAIRED DRIVING ABILITY [None]
  - INSOMNIA [None]
  - NAUSEA [None]
  - TREMOR [None]
